FAERS Safety Report 19854465 (Version 1)
Quarter: 2021Q3

REPORT INFORMATION
  Report Type: Spontaneous
  Country: US (occurrence: US)
  Receive Date: 20210916
  Receipt Date: 20210916
  Transmission Date: 20211014
  Serious: Yes (Hospitalization)
  Sender: FDA-Public Use
  Company Number: None

PATIENT
  Age: 30 Year
  Sex: Male
  Weight: 122.47 kg

DRUGS (3)
  1. ONCASPAR [Suspect]
     Active Substance: PEGASPARGASE
  2. METHOTREXATE. [Suspect]
     Active Substance: METHOTREXATE
  3. VINCRISTINE SULFATE. [Suspect]
     Active Substance: VINCRISTINE SULFATE

REACTIONS (10)
  - Diarrhoea [None]
  - Abdominal pain [None]
  - Vomiting [None]
  - Tachycardia [None]
  - Liver function test increased [None]
  - Blood bilirubin increased [None]
  - Computerised tomogram abdomen abnormal [None]
  - Gallbladder disorder [None]
  - Febrile neutropenia [None]
  - Ascites [None]

NARRATIVE: CASE EVENT DATE: 20210914
